FAERS Safety Report 5124915-4 (Version None)
Quarter: 2006Q4

REPORT INFORMATION
  Report Type: 
  Country: None (occurrence: None)
  Receive Date: 20061006
  Receipt Date: 20060922
  Transmission Date: 20070319
  Serious: Yes (Hospitalization)
  Sender: FDA-Public Use
  Company Number: SPVI-2006-00929

PATIENT
  Age: 50 Year
  Sex: Male

DRUGS (1)
  1. PENTASA [Suspect]
     Indication: COLITIS ULCERATIVE
     Dosage: ORAL
     Route: 048

REACTIONS (4)
  - BIOPSY KIDNEY ABNORMAL [None]
  - HAEMATURIA [None]
  - HISTOLOGY ABNORMAL [None]
  - PROTEINURIA [None]
